FAERS Safety Report 16253870 (Version 1)
Quarter: 2019Q2

REPORT INFORMATION
  Report Type: Spontaneous
  Country: CA (occurrence: CA)
  Receive Date: 20190430
  Receipt Date: 20190430
  Transmission Date: 20190711
  Serious: Yes (Other)
  Sender: FDA-Public Use
  Company Number: CA-TEVA-2019-CA-1041702

PATIENT
  Age: 63 Year
  Sex: Female
  Weight: 90.8 kg

DRUGS (7)
  1. NORVASC [Concomitant]
     Active Substance: AMLODIPINE BESYLATE
  2. ZOPICLONE [Concomitant]
     Active Substance: ZOPICLONE
  3. BISOPROLOL [Concomitant]
     Active Substance: BISOPROLOL
  4. BACLOFEN. [Concomitant]
     Active Substance: BACLOFEN
  5. ATORVASTATIN CALCIUM. [Suspect]
     Active Substance: ATORVASTATIN CALCIUM
     Indication: DYSLIPIDAEMIA
     Dosage: 20 MILLIGRAM DAILY;
     Route: 048
  6. ATIVAN [Concomitant]
     Active Substance: LORAZEPAM
  7. JARDIANCE [Concomitant]
     Active Substance: EMPAGLIFLOZIN

REACTIONS (4)
  - Throat irritation [Recovering/Resolving]
  - Dysphagia [Recovering/Resolving]
  - Swollen tongue [Recovering/Resolving]
  - Cough [Recovering/Resolving]
